FAERS Safety Report 7257557-5 (Version None)
Quarter: 2011Q1

REPORT INFORMATION
  Report Type: 
  Country: None (occurrence: None)
  Receive Date: 20110129
  Receipt Date: 20100607
  Transmission Date: 20110831
  Serious: No
  Sender: FDA-Public Use
  Company Number: US-ABBOTT-10P-163-0649142-00

PATIENT
  Sex: Male
  Weight: 80.812 kg

DRUGS (2)
  1. HUMIRA [Suspect]
     Indication: BACK PAIN
  2. HUMIRA [Suspect]
     Indication: NECK PAIN
     Dates: end: 20100101

REACTIONS (1)
  - ABDOMINAL PAIN [None]
